FAERS Safety Report 6092103-3 (Version None)
Quarter: 2009Q1

REPORT INFORMATION
  Report Type: 
  Country: None (occurrence: None)
  Receive Date: 20090225
  Receipt Date: 20090214
  Transmission Date: 20090719
  Serious: Yes (Other)
  Sender: FDA-Public Use
  Company Number: NO-BAXTER-2009BH001078

PATIENT
  Age: 33 Year
  Sex: Male

DRUGS (18)
  1. HOLOXAN BAXTER [Suspect]
     Indication: EWING'S SARCOMA
     Route: 065
     Dates: start: 20081126, end: 20081128
  2. HOLOXAN BAXTER [Suspect]
     Route: 065
     Dates: start: 20081215, end: 20081217
  3. HOLOXAN BAXTER [Suspect]
     Route: 065
     Dates: start: 20081126, end: 20081128
  4. BLEOMYCIN GENERIC [Suspect]
     Indication: EWING'S SARCOMA
     Route: 065
  5. CISPLATIN [Suspect]
     Indication: EWING'S SARCOMA
     Route: 065
  6. VINCRISTINE [Suspect]
     Indication: EWING'S SARCOMA
     Route: 065
     Dates: start: 20081215, end: 20081215
  7. MESNA [Suspect]
     Indication: EWING'S SARCOMA
     Route: 065
     Dates: start: 20081215, end: 20081216
  8. DOXORUBICIN HCL [Suspect]
     Indication: EWING'S SARCOMA
     Route: 065
     Dates: start: 20081215, end: 20081217
  9. ETOPOSIDE [Suspect]
     Indication: EWING'S SARCOMA
     Route: 065
     Dates: start: 20081215, end: 20081216
  10. ZOPICLONE [Concomitant]
     Dates: start: 20081218, end: 20081218
  11. DUPHALAC /NET/ [Concomitant]
     Dates: start: 20081215, end: 20081219
  12. PARACETAMOL [Concomitant]
     Dates: start: 20081215, end: 20081219
  13. FRAGMIN [Concomitant]
     Route: 058
     Dates: start: 20081215, end: 20081219
  14. MORPHINE [Concomitant]
  15. KETALAR [Concomitant]
     Route: 058
  16. DEXAMETHASONE [Concomitant]
     Dates: start: 20081215, end: 20081217
  17. EMEND [Concomitant]
     Dates: start: 20081215, end: 20081217
  18. ZOFRAN [Concomitant]
     Dates: start: 20081215, end: 20081219

REACTIONS (1)
  - ENCEPHALOPATHY [None]
